FAERS Safety Report 5809472-9 (Version None)
Quarter: 2008Q3

REPORT INFORMATION
  Report Type: 
  Country: None (occurrence: None)
  Receive Date: 20080709
  Receipt Date: 20080624
  Transmission Date: 20090109
  Serious: Yes (Death)
  Sender: FDA-Public Use
  Company Number: 2008S1010935

PATIENT
  Age: 69 Year
  Sex: Female

DRUGS (2)
  1. WARFARIN SODIUM [Suspect]
     Indication: ANTICOAGULANT THERAPY
  2. HEPARIN [Suspect]
     Dosage: 5000 IU; Q12 SUBCUTANEOUS
     Route: 058

REACTIONS (16)
  - ABDOMINAL PAIN [None]
  - ADRENAL CORTEX NECROSIS [None]
  - ANOXIC ENCEPHALOPATHY [None]
  - CARDIAC ARREST [None]
  - CONFUSIONAL STATE [None]
  - DEEP VEIN THROMBOSIS [None]
  - DISSEMINATED INTRAVASCULAR COAGULATION [None]
  - HEADACHE [None]
  - HEPARIN-INDUCED THROMBOCYTOPENIA [None]
  - HYPOTENSION [None]
  - INFARCTION [None]
  - POST PROCEDURAL COMPLICATION [None]
  - PYREXIA [None]
  - SHOCK [None]
  - TACHYCARDIA [None]
  - VOMITING [None]
